FAERS Safety Report 4553557-4 (Version None)
Quarter: 2004Q4

REPORT INFORMATION
  Report Type: 
  Country: None (occurrence: None)
  Receive Date: 20041227
  Receipt Date: 20040902
  Transmission Date: 20050328
  Serious: No
  Sender: FDA-Public Use
  Company Number: 04P-163-0272204-00

PATIENT
  Age: 45 Year
  Sex: Female
  Weight: 72.5755 kg

DRUGS (4)
  1. HUMIRA [Suspect]
     Indication: RHEUMATOID ARTHRITIS
     Dosage: 40 MG, 1 IN 2 WK, SUBCUTANEOUS
     Route: 058
     Dates: start: 20040826
  2. KETOPROFEN [Concomitant]
  3. METHOTREXATE [Concomitant]
  4. SINA [Concomitant]

REACTIONS (3)
  - AGITATION [None]
  - ANXIETY [None]
  - EMOTIONAL DISTRESS [None]
